FAERS Safety Report 11778737 (Version 2)
Quarter: 2016Q1

REPORT INFORMATION
  Report Type: Spontaneous
  Country: DE (occurrence: DE)
  Receive Date: 20151125
  Receipt Date: 20160115
  Transmission Date: 20160525
  Serious: Yes (Hospitalization)
  Sender: FDA-Public Use
  Company Number: CHPA2015DE013881

PATIENT
  Age: 80 Year
  Sex: Female
  Weight: 79 kg

DRUGS (10)
  1. PREDNISOLONE. [Suspect]
     Active Substance: PREDNISOLONE
     Indication: ERYTHEMA
     Dosage: UNK
     Route: 065
     Dates: start: 20151117
  2. NEBIVOLOL. [Concomitant]
     Active Substance: NEBIVOLOL
     Indication: HYPERTENSION
     Dosage: 1 DF, UNK
     Route: 065
     Dates: start: 20151117
  3. JANUVIA [Concomitant]
     Active Substance: SITAGLIPTIN PHOSPHATE
     Indication: TYPE 2 DIABETES MELLITUS
     Dosage: 1 DF, UNK
     Route: 065
     Dates: start: 20151117
  4. RAMIPRIL. [Concomitant]
     Active Substance: RAMIPRIL
     Indication: HYPERTENSION
     Dosage: 1 DF, UNK
     Route: 065
     Dates: start: 20151117
  5. SIOFOR [Concomitant]
     Active Substance: METFORMIN HYDROCHLORIDE
     Indication: TYPE 2 DIABETES MELLITUS
     Dosage: 1 DF, UNK
     Dates: start: 20151117
  6. PREDNISOLON [Concomitant]
     Active Substance: PREDNISOLONE
     Indication: PRODUCT USED FOR UNKNOWN INDICATION
     Dosage: 1 DF, UNK
     Route: 065
     Dates: start: 20151117
  7. VOLTAREN [Suspect]
     Active Substance: DICLOFENAC SODIUM
     Indication: RHEUMATIC DISORDER
  8. NOVAMINSULFON-SANDOZ [Suspect]
     Active Substance: METAMIZOLE
     Indication: RHEUMATIC DISORDER
     Dosage: 30 GTT, ONCE/SINGLE
     Route: 065
     Dates: start: 20151117
  9. VOLTAREN [Suspect]
     Active Substance: DICLOFENAC SODIUM
     Indication: POLYMYALGIA RHEUMATICA
     Dosage: UNK
     Route: 061
     Dates: start: 20151117, end: 20151117
  10. LEVOTHYROXINE. [Concomitant]
     Active Substance: LEVOTHYROXINE
     Indication: THYROID DISORDER
     Dosage: 1 DF, UNK
     Route: 065
     Dates: start: 20151117

REACTIONS (8)
  - Erythema [Recovered/Resolved]
  - Pruritus generalised [Recovered/Resolved]
  - Feeling abnormal [Recovered/Resolved]
  - No reaction on previous exposure to drug [None]
  - Condition aggravated [Recovered/Resolved]
  - Thermal burn [Recovered/Resolved]
  - Hypersensitivity [Recovered/Resolved]
  - Product quality issue [None]

NARRATIVE: CASE EVENT DATE: 20151117
